FAERS Safety Report 8575441-1 (Version None)
Quarter: 2012Q3

REPORT INFORMATION
  Report Type: 
  Country: None (occurrence: None)
  Receive Date: 20120807
  Receipt Date: 20120731
  Transmission Date: 20120928
  Serious: Yes (Hospitalization, Other)
  Sender: FDA-Public Use
  Company Number: PHHY2011CA05623

PATIENT
  Sex: Female
  Weight: 65.5 kg

DRUGS (3)
  1. ZOLEDRONOC ACID [Suspect]
     Indication: OSTEOPOROSIS
     Route: 042
     Dates: start: 20100311
  2. CALCIUM [Concomitant]
     Dosage: 1000 MG, DAILY
     Dates: start: 20010813
  3. VITAMIN D [Concomitant]
     Dosage: 8000 U, DAILY

REACTIONS (3)
  - FALL [None]
  - ACETABULUM FRACTURE [None]
  - PELVIC FRACTURE [None]
